FAERS Safety Report 6809803-7 (Version None)
Quarter: 2010Q2

REPORT INFORMATION
  Report Type: 
  Country: None (occurrence: None)
  Receive Date: 20100630
  Receipt Date: 20100628
  Transmission Date: 20101027
  Serious: Yes (Other)
  Sender: FDA-Public Use
  Company Number: DE-BAYER-201030349GPV

PATIENT
  Age: 61 Year
  Sex: Female

DRUGS (1)
  1. AVELOX [Suspect]
     Indication: DRUG USE FOR UNKNOWN INDICATION

REACTIONS (6)
  - ANXIETY [None]
  - ASTHENIA [None]
  - DIZZINESS [None]
  - NAUSEA [None]
  - PALLOR [None]
  - TACHYCARDIA [None]
